FAERS Safety Report 6709590-7 (Version None)
Quarter: 2010Q2

REPORT INFORMATION
  Report Type: 
  Country: None (occurrence: None)
  Receive Date: 20100504
  Receipt Date: 20100423
  Transmission Date: 20101027
  Serious: Yes (Hospitalization, Disabling)
  Sender: FDA-Public Use
  Company Number: BE-ROCHE-695838

PATIENT
  Sex: Female
  Weight: 70 kg

DRUGS (6)
  1. CAPECITABINE [Suspect]
     Indication: RECTAL CANCER
     Dosage: DOSE PRIOR TO EVENT: 29 MAR 2010, DOSE AT LAST ADMIN: 2X1500 MG, PAUSED FROM 30/03/10 TO 5/04/10
     Route: 048
     Dates: start: 20100301
  2. OXALIPLATIN [Suspect]
     Indication: RECTAL CANCER
     Route: 042
  3. MORPHINE [Suspect]
     Dosage: DRUG: MORPHINE + MCV. DOSE: 2 X 10 MG.
     Route: 048
     Dates: start: 20100329, end: 20100331
  4. MCP [Concomitant]
     Indication: NAUSEA
     Dosage: FREQUENCY: 10 MG X 3
     Route: 048
     Dates: start: 20100330, end: 20100401
  5. IBUPROFEN [Concomitant]
     Route: 048
     Dates: start: 20100327, end: 20100405
  6. METAMIZOLE SODIUM [Concomitant]
     Route: 054
     Dates: start: 20100322, end: 20100415

REACTIONS (1)
  - DRUG INTOLERANCE [None]
